FAERS Safety Report 12577401 (Version 2)
Quarter: 2016Q3

REPORT INFORMATION
  Report Type: Report from Study
  Country: AU (occurrence: AU)
  Receive Date: 20160720
  Receipt Date: 20160725
  Transmission Date: 20161109
  Serious: Yes (Other)
  Sender: FDA-Public Use
  Company Number: AU-BIOGEN-2015BI136176

PATIENT
  Age: 55 Year
  Sex: Female

DRUGS (5)
  1. TECFIDERA [Suspect]
     Active Substance: DIMETHYL FUMARATE
     Route: 048
     Dates: start: 20151026
  2. TECFIDERA [Suspect]
     Active Substance: DIMETHYL FUMARATE
     Dosage: MAINTENANCE DOSE
     Route: 048
     Dates: end: 201607
  3. TECFIDERA [Suspect]
     Active Substance: DIMETHYL FUMARATE
     Indication: MULTIPLE SCLEROSIS
     Dosage: MAINTENANCE DOSE
     Route: 048
     Dates: start: 20150924
  4. PREDNISOLONE. [Concomitant]
     Active Substance: PREDNISOLONE
     Indication: PRODUCT USED FOR UNKNOWN INDICATION
     Dosage: DECREASING OVER A SIX DAY PERIOD
     Route: 048
  5. TECFIDERA [Suspect]
     Active Substance: DIMETHYL FUMARATE
     Dosage: STARTING DOSE
     Route: 048
     Dates: start: 201511

REACTIONS (18)
  - Flatulence [Unknown]
  - Thyroid function test abnormal [Unknown]
  - Myocardial infarction [Unknown]
  - Feeling abnormal [Unknown]
  - Arthritis [Unknown]
  - Malaise [Unknown]
  - Intentional underdose [Recovered/Resolved]
  - Fatigue [Unknown]
  - Abdominal pain upper [Unknown]
  - Diarrhoea [Unknown]
  - Tachycardia [Unknown]
  - Multiple sclerosis relapse [Unknown]
  - Nausea [Unknown]
  - Thyroid mass [Unknown]
  - Insomnia [Unknown]
  - Asthenia [Unknown]
  - Panic attack [Unknown]
  - Vomiting [Unknown]

NARRATIVE: CASE EVENT DATE: 20150924
